FAERS Safety Report 8556039-8 (Version None)
Quarter: 2012Q3

REPORT INFORMATION
  Report Type: 
  Country: None (occurrence: None)
  Receive Date: 20120719
  Receipt Date: 20120703
  Transmission Date: 20120928
  Serious: Yes (Death)
  Sender: FDA-Public Use
  Company Number: ZOLP20120060

PATIENT
  Age: 52 Year
  Sex: Male
  Weight: 63 kg

DRUGS (2)
  1. HYDROMORPHONE (HYDROMORPHONE) (2 MILLIGRAM, INJECTION FOR INFUSION) [Suspect]
     Indication: PAIN
     Dosage: 11 MG OVER 6 HOURS, 1 IN 2 HR, INTRAVENOUS
     Route: 042
  2. ZOLPIDEM TARTRATE [Suspect]
     Indication: PRODUCT USED FOR UNKNOWN INDICATION
     Dosage: 10 MG, ONE DOSE, ORAL
     Route: 048

REACTIONS (2)
  - FLANK PAIN [None]
  - HAEMATURIA [None]
